FAERS Safety Report 5701002-5 (Version None)
Quarter: 2008Q2

REPORT INFORMATION
  Report Type: 
  Country: None (occurrence: None)
  Receive Date: 20080410
  Receipt Date: 20080403
  Transmission Date: 20081010
  Serious: Yes (Other)
  Sender: FDA-Public Use
  Company Number: US-ASTRAZENECA-2006UW11174

PATIENT
  Age: 493 Month
  Sex: Female
  Weight: 63.6 kg

DRUGS (7)
  1. SEROQUEL [Suspect]
     Indication: BIPOLAR DISORDER
     Route: 048
     Dates: start: 20030414, end: 20041028
  2. SEROQUEL [Suspect]
     Indication: DEPRESSION
     Route: 048
     Dates: start: 20030414, end: 20041028
  3. ZYPREXA [Suspect]
     Dates: start: 19930101, end: 20061201
  4. ABILIFY [Concomitant]
  5. GEODON [Concomitant]
  6. RISPERDAL [Concomitant]
  7. LITHIUM CARBONATE [Concomitant]

REACTIONS (2)
  - DIABETES MELLITUS [None]
  - DIABETIC NEUROPATHY [None]
